FAERS Safety Report 23221876 (Version 2)
Quarter: 2024Q1

REPORT INFORMATION
  Report Type: Report from Study
  Country: US (occurrence: US)
  Receive Date: 20231123
  Receipt Date: 20240219
  Transmission Date: 20240410
  Serious: Yes (Other)
  Sender: FDA-Public Use
  Company Number: US-TEVA-2023-US-2946857

PATIENT

DRUGS (1)
  1. SULFAMETHOXAZOLE\TRIMETHOPRIM [Suspect]
     Active Substance: SULFAMETHOXAZOLE\TRIMETHOPRIM
     Indication: Antifungal prophylaxis
     Dosage: DOSAGE TEXT: TRIMETHOPRIM 40MG/SULFAMETHOXAZOLE 400MG
     Route: 065

REACTIONS (1)
  - Glucose-6-phosphate dehydrogenase deficiency [Unknown]
